FAERS Safety Report 4692901-4 (Version None)
Quarter: 2005Q2

REPORT INFORMATION
  Report Type: 
  Country: None (occurrence: None)
  Receive Date: 20050615
  Receipt Date: 20050602
  Transmission Date: 20051028
  Serious: Yes (Hospitalization)
  Sender: FDA-Public Use
  Company Number: AU-2005-009412

PATIENT
  Age: 40 Year
  Sex: Male

DRUGS (1)
  1. LEUKINE [Suspect]
     Indication: CROHN'S DISEASE
     Dosage: 1 ML, 1X/DAY, SUBCUTANEOUS
     Route: 058
     Dates: start: 20050523, end: 20050531

REACTIONS (6)
  - ANGINA PECTORIS [None]
  - BONE PAIN [None]
  - CHEST WALL PAIN [None]
  - HYPERVISCOSITY SYNDROME [None]
  - NEUTROPHILIA [None]
  - WHITE BLOOD CELL COUNT INCREASED [None]
